FAERS Safety Report 18192593 (Version 1)
Quarter: 2020Q3

REPORT INFORMATION
  Report Type: Spontaneous
  Country: US (occurrence: US)
  Receive Date: 20200825
  Receipt Date: 20200825
  Transmission Date: 20201103
  Serious: Yes (Death, Life-Threatening, Hospitalization, Disabling, Congenital Anomaly)
  Sender: FDA-Public Use
  Company Number: None

PATIENT
  Age: 41 Year
  Sex: Female
  Weight: 67.5 kg

DRUGS (5)
  1. CYTOTEC [Suspect]
     Active Substance: MISOPROSTOL
     Indication: LABOUR INDUCTION
     Route: 067
     Dates: start: 20200216, end: 20200216
  2. HYDROXYZINE [Concomitant]
     Active Substance: HYDROXYZINE HYDROCHLORIDE
  3. FLUOXETINE [Concomitant]
     Active Substance: FLUOXETINE HYDROCHLORIDE
  4. TRAZODONE [Concomitant]
     Active Substance: TRAZODONE HYDROCHLORIDE
  5. ABILIFY [Concomitant]
     Active Substance: ARIPIPRAZOLE

REACTIONS (13)
  - Refusal of treatment by patient [None]
  - Product prescribing issue [None]
  - Iatrogenic injury [None]
  - Off label use [None]
  - Transfusion [None]
  - Wrong product administered [None]
  - Pain [None]
  - Caesarean section [None]
  - Hysterectomy [None]
  - Exposure during pregnancy [None]
  - Procedural haemorrhage [None]
  - Incorrect dose administered [None]
  - Death neonatal [None]

NARRATIVE: CASE EVENT DATE: 20200216
